FAERS Safety Report 5017486-4 (Version None)
Quarter: 2006Q2

REPORT INFORMATION
  Report Type: 
  Country: None (occurrence: None)
  Receive Date: 20060525
  Receipt Date: 20060502
  Transmission Date: 20061013
  Serious: Yes (Death, Other)
  Sender: FDA-Public Use
  Company Number: US200605000686

PATIENT
  Sex: Male

DRUGS (1)
  1. HUMATROPE [Suspect]

REACTIONS (3)
  - GASTROINTESTINAL NECROSIS [None]
  - SEPSIS [None]
  - SURGERY [None]
